FAERS Safety Report 11513244 (Version 1)
Quarter: 2015Q3

REPORT INFORMATION
  Report Type: Spontaneous
  Country: US (occurrence: US)
  Receive Date: 20150903
  Receipt Date: 20150903
  Transmission Date: 20151125
  Serious: No
  Sender: FDA-Public Use
  Company Number: US-ELI_LILLY_AND_COMPANY-US201208006134

PATIENT
  Age: 32 Year
  Sex: Female
  Weight: 68.03 kg

DRUGS (8)
  1. OMEPRAZOLE. [Concomitant]
     Active Substance: OMEPRAZOLE
     Dosage: 20 MG, QD
  2. CYMBALTA [Suspect]
     Active Substance: DULOXETINE HYDROCHLORIDE
     Dosage: 60 MG, UNK
  3. AMLOPINE [Concomitant]
     Dosage: 5 UG, QD
  4. OXYCODONE [Concomitant]
     Active Substance: OXYCODONE
     Dosage: UNK, PRN
  5. CYMBALTA [Suspect]
     Active Substance: DULOXETINE HYDROCHLORIDE
     Indication: DEPRESSION
     Dosage: 90 MG, UNK
  6. CYMBALTA [Suspect]
     Active Substance: DULOXETINE HYDROCHLORIDE
     Dosage: 60 MG, QD
     Route: 048
  7. SUCRAFATE [Concomitant]
     Active Substance: SUCRALFATE
     Dosage: 1 G, UNK
  8. CYMBALTA [Suspect]
     Active Substance: DULOXETINE HYDROCHLORIDE
     Dosage: 30 MG, UNK

REACTIONS (6)
  - Headache [Recovered/Resolved]
  - Crying [Recovered/Resolved]
  - Insomnia [Recovered/Resolved]
  - Drug withdrawal syndrome [Recovered/Resolved]
  - Intentional product misuse [Recovered/Resolved]
  - Agitation [Recovered/Resolved]
